FAERS Safety Report 5796514-2 (Version None)
Quarter: 2008Q3

REPORT INFORMATION
  Report Type: 
  Country: None (occurrence: None)
  Receive Date: 20080701
  Receipt Date: 20080627
  Transmission Date: 20090109
  Serious: Yes (Hospitalization)
  Sender: FDA-Public Use
  Company Number: B0524832A

PATIENT
  Age: 71 Year

DRUGS (3)
  1. ARIXTRA [Suspect]
     Indication: THROMBOSIS PROPHYLAXIS
     Dosage: 1.5MG PER DAY
     Route: 058
  2. LOXONIN [Concomitant]
     Dosage: 60MG THREE TIMES PER DAY
     Route: 048
  3. MUCOSTA [Concomitant]
     Dosage: 100MG THREE TIMES PER DAY
     Route: 048

REACTIONS (2)
  - GASTRIC ULCER [None]
  - UPPER GASTROINTESTINAL HAEMORRHAGE [None]
